FAERS Safety Report 8370889-2 (Version None)
Quarter: 2012Q2

REPORT INFORMATION
  Report Type: 
  Country: None (occurrence: None)
  Receive Date: 20120518
  Receipt Date: 20110815
  Transmission Date: 20120825
  Serious: No
  Sender: FDA-Public Use
  Company Number: US-ASTRAZENECA-2011SE57784

PATIENT
  Sex: Male

DRUGS (3)
  1. TYLENOL [Concomitant]
     Dosage: UNKNOWN
  2. PRILOSEC OTC [Suspect]
     Route: 048
     Dates: start: 20110621, end: 20110731
  3. NAPROXEN (ALEVE) [Concomitant]
     Dosage: UNKNOWN

REACTIONS (6)
  - DIZZINESS [None]
  - SALIVA DISCOLOURATION [None]
  - MALAISE [None]
  - ABDOMINAL PAIN UPPER [None]
  - INAPPROPRIATE SCHEDULE OF DRUG ADMINISTRATION [None]
  - NAUSEA [None]
